FAERS Safety Report 20535868 (Version 1)
Quarter: 2022Q1

REPORT INFORMATION
  Report Type: Spontaneous
  Country: FR (occurrence: FR)
  Receive Date: 20220302
  Receipt Date: 20220302
  Transmission Date: 20220423
  Serious: Yes (Hospitalization)
  Sender: FDA-Public Use
  Company Number: None

PATIENT
  Age: 24 Year
  Sex: Female
  Weight: 85 kg

DRUGS (7)
  1. RIVAROXABAN [Suspect]
     Active Substance: RIVAROXABAN
     Indication: Anticoagulant therapy
     Dosage: 30 MG
     Route: 048
     Dates: start: 20210924, end: 20210929
  2. CEFTRIAXONE [Suspect]
     Active Substance: CEFTRIAXONE
     Indication: Pneumonia
     Dosage: 1G PRISE UNIQUE EN IVL
     Route: 041
     Dates: start: 20210925, end: 20210928
  3. AMOXICILLIN [Suspect]
     Active Substance: AMOXICILLIN
     Indication: Pneumonia
     Dosage: 1DF 3X/J
     Route: 048
     Dates: start: 20210923, end: 20210925
  4. SPIRAMYCIN ADIPATE [Suspect]
     Active Substance: SPIRAMYCIN ADIPATE
     Indication: Pneumonia
     Dosage: 1.5 MU 3X/J
     Route: 041
     Dates: start: 20210925, end: 20210928
  5. DOLIPRANE [Concomitant]
     Active Substance: ACETAMINOPHEN
  6. LEVOFLOXACIN [Concomitant]
     Active Substance: LEVOFLOXACIN
  7. ETHINYL ESTRADIOL\LEVONORGESTREL [Concomitant]
     Active Substance: ETHINYL ESTRADIOL\LEVONORGESTREL

REACTIONS (1)
  - Cholestatic liver injury [Recovered/Resolved]

NARRATIVE: CASE EVENT DATE: 20210929
